FAERS Safety Report 13554623 (Version 1)
Quarter: 2017Q2

REPORT INFORMATION
  Report Type: Spontaneous
  Country: US (occurrence: US)
  Receive Date: 20170517
  Receipt Date: 20170517
  Transmission Date: 20170830
  Serious: Yes (Hospitalization)
  Sender: FDA-Public Use
  Company Number: US-RISING PHARMACEUTICALS, INC.-2017RIS00099

PATIENT
  Age: 20 Year
  Sex: Male

DRUGS (2)
  1. LEVOFLOXACIN. [Suspect]
     Active Substance: LEVOFLOXACIN
     Indication: EPIDIDYMITIS
     Dosage: 750 MG, 1X/DAY
     Route: 065
  2. INSULIN [Concomitant]
     Active Substance: INSULIN NOS
     Dosage: 4 UNITS BEFORE BREAKFAST, 8 UNITS BEFORE LUNCH, 11 UNITS BEFORE DINNER, 12 UNITS BEDTIME
     Route: 058

REACTIONS (1)
  - Neuropathy peripheral [Recovering/Resolving]
